FAERS Safety Report 7312339-0 (Version None)
Quarter: 2011Q1

REPORT INFORMATION
  Report Type: 
  Country: None (occurrence: None)
  Receive Date: 20110224
  Receipt Date: 20110214
  Transmission Date: 20110831
  Serious: Yes (Hospitalization, Other)
  Sender: FDA-Public Use
  Company Number: US-ELI_LILLY_AND_COMPANY-US201102004330

PATIENT
  Sex: Female

DRUGS (20)
  1. DORZOLAMIDE [Concomitant]
  2. VERAPAMIL [Concomitant]
  3. LUMIGAN [Concomitant]
  4. PROFEN FORTE [Concomitant]
  5. MICARDIS [Concomitant]
  6. CLONIDINE [Concomitant]
  7. AMLODIPINE [Concomitant]
  8. FOLIC ACID [Concomitant]
  9. LISINOPRIL [Concomitant]
  10. POTASSIUM [Concomitant]
  11. SIMVASTATIN [Concomitant]
  12. WARFARIN [Concomitant]
  13. FORTEO [Suspect]
     Indication: OSTEOPOROSIS
     Dosage: 20 UG, DAILY (1/D)
     Dates: start: 20100901
  14. LEVOTHYROXINE SODIUM [Concomitant]
  15. CARDURA [Concomitant]
  16. FUROSEMIDE [Concomitant]
  17. ZETIA [Concomitant]
  18. METOPROLOL TARTRATE [Concomitant]
  19. SODIUM BICARBONATE [Concomitant]
  20. CALCIUM ACETATE [Concomitant]

REACTIONS (3)
  - CARDIAC FAILURE CONGESTIVE [None]
  - DYSPNOEA [None]
  - RENAL FAILURE [None]
